FAERS Safety Report 8900358 (Version 1)
Quarter: 2012Q4

REPORT INFORMATION
  Report Type: 
  Country: US (occurrence: US)
  Receive Date: 20121108
  Receipt Date: 20121108
  Transmission Date: 20130627
  Serious: No
  Sender: FDA-Public Use
  Company Number: US-AMGEN-USASP2012037856

PATIENT
  Age: 74 Year
  Sex: Female
  Weight: 58.9 kg

DRUGS (8)
  1. ENBREL [Suspect]
     Indication: PRODUCT USED FOR UNKNOWN INDICATION
     Dosage: 25 mg, 2 times/wk
  2. PREDNISONE [Concomitant]
     Dosage: 10 mg, UNK
  3. VITAMIN E                          /00110501/ [Concomitant]
     Dosage: 200 IU, UNK
  4. CALCIUM [Concomitant]
     Dosage: UNK
  5. MULTIVITAMINS [Concomitant]
     Dosage: UNK
  6. VITAMIN C                          /00008001/ [Concomitant]
     Dosage: 500 mg, UNK
  7. BABY ASPIRIN [Concomitant]
     Dosage: 81 mg, UNK
  8. HYDROCHLOROTHIAZIDE W/TRIAMTERENE [Concomitant]
     Dosage: UNK

REACTIONS (3)
  - Injection site erythema [Unknown]
  - Injection site pruritus [Unknown]
  - Injection site swelling [Unknown]
